FAERS Safety Report 23325642 (Version 8)
Quarter: 2024Q2

REPORT INFORMATION
  Report Type: Spontaneous
  Country: DE (occurrence: DE)
  Receive Date: 20231221
  Receipt Date: 20240426
  Transmission Date: 20240716
  Serious: Yes (Other)
  Sender: FDA-Public Use
  Company Number: DE-002147023-NVSC2023DE266076

PATIENT
  Age: 57 Year
  Sex: Male

DRUGS (15)
  1. EVEROLIMUS [Suspect]
     Active Substance: EVEROLIMUS
     Indication: Hodgkin^s disease nodular sclerosis stage III
     Dosage: 15 MG, QD (LOW DOSE)
     Route: 048
     Dates: start: 202208, end: 202305
  2. ETORICOXIB [Suspect]
     Active Substance: ETORICOXIB
     Indication: Hodgkin^s disease
     Dosage: 60 MG, QD (LOW DOSE)
     Route: 048
     Dates: start: 202208, end: 202305
  3. DEXAMETHASONE [Suspect]
     Active Substance: DEXAMETHASONE
     Indication: Hodgkin^s disease nodular sclerosis stage III
     Dosage: 0.5 MG, QD (LOW DOSE)
     Route: 048
     Dates: start: 202208, end: 202305
  4. ETOPOSIDE [Suspect]
     Active Substance: ETOPOSIDE
     Indication: Hodgkin^s disease nodular sclerosis stage III
     Dosage: RECEIVED 5 CYCLES. PART OF BEACOPP REGIMEN
     Route: 065
  5. DOXORUBICIN [Suspect]
     Active Substance: DOXORUBICIN
     Indication: Hodgkin^s disease nodular sclerosis stage III
     Dosage: RECEIVED 5 CYCLES. PART OF BEACOPP REGIMEN
     Route: 065
  6. PREDNISOLONE [Suspect]
     Active Substance: PREDNISOLONE
     Indication: Hodgkin^s disease nodular sclerosis stage III
     Dosage: RECEIVED 5 CYCLES.PART OF BEACOPP REGIMEN
     Route: 065
  7. TREOSULFAN [Suspect]
     Active Substance: TREOSULFAN
     Indication: Hodgkin^s disease nodular sclerosis stage III
     Dosage: 250 MG, QD (LOW-DOSE)
     Route: 048
     Dates: start: 202208, end: 202305
  8. PIOGLITAZONE [Suspect]
     Active Substance: PIOGLITAZONE
     Indication: Hodgkin^s disease nodular sclerosis stage III
     Dosage: ON DAY 1-28 IN A 28 DAYS CYCLE
     Route: 065
     Dates: start: 202208, end: 202305
  9. BLEOMYCIN [Suspect]
     Active Substance: BLEOMYCIN SULFATE
     Indication: Hodgkin^s disease nodular sclerosis stage III
     Dosage: RECEIVED 5 CYCLES. PART OF BEACOPP REGIMEN
     Route: 065
  10. BLEOMYCIN [Suspect]
     Active Substance: BLEOMYCIN SULFATE
     Dosage: UNK
     Route: 065
     Dates: start: 2014
  11. CYCLOPHOSPHAMIDE [Suspect]
     Active Substance: CYCLOPHOSPHAMIDE
     Indication: Hodgkin^s disease nodular sclerosis stage III
     Dosage: RECEIVED 5 CYCLES.PART OF BEACOPP REGIMEN
     Route: 065
  12. PROCARBAZINE [Suspect]
     Active Substance: PROCARBAZINE
     Indication: Hodgkin^s disease nodular sclerosis stage III
     Dosage: RECEIVED 5 CYCLES. PART OF BEACOPP REGIMEN
     Route: 065
  13. PROCARBAZINE [Suspect]
     Active Substance: PROCARBAZINE
     Indication: Product used for unknown indication
     Dosage: UNK
     Route: 065
     Dates: start: 2014
  14. PROCARBAZINE [Suspect]
     Active Substance: PROCARBAZINE
     Dosage: UNK
     Route: 065
  15. VINCRISTINE [Suspect]
     Active Substance: VINCRISTINE
     Indication: Hodgkin^s disease nodular sclerosis stage III
     Dosage: RECEIVED 5 CYCLES.PART OF BEACOPP REGIMEN
     Route: 065

REACTIONS (9)
  - Pneumonitis [Recovered/Resolved]
  - Pneumonia [Recovered/Resolved]
  - Oedema peripheral [Recovered/Resolved]
  - Weight increased [Recovered/Resolved]
  - Urinary tract infection [Recovered/Resolved]
  - Pneumonitis chemical [Recovered/Resolved]
  - Drug ineffective [Unknown]
  - Lung infiltration [Recovered/Resolved]
  - Product use in unapproved indication [Unknown]

NARRATIVE: CASE EVENT DATE: 20230501
